FAERS Safety Report 4670917-1 (Version None)
Quarter: 2005Q2

REPORT INFORMATION
  Report Type: 
  Country: None (occurrence: None)
  Receive Date: 20050523
  Receipt Date: 20050517
  Transmission Date: 20051028
  Serious: Yes (Other)
  Sender: FDA-Public Use
  Company Number: 2005066239

PATIENT
  Age: 71 Year
  Sex: Female

DRUGS (15)
  1. LIPITOR [Suspect]
     Indication: HYPERLIPIDAEMIA
     Dosage: ORAL
     Route: 048
  2. ZANTAC 150 [Suspect]
     Indication: GASTRIC PH DECREASED
     Dosage: 150 MG (1 IN 1 D), ORAL
     Route: 048
     Dates: start: 20040729, end: 20040730
  3. ATARAX [Suspect]
     Indication: ILL-DEFINED DISORDER
     Dosage: 50 MG (1 IN 1 D), INTRAVENOUS
     Route: 042
  4. DIPRIVAN [Suspect]
     Indication: GENERAL ANAESTHESIA
     Dosage: 80 MG (1 IN 1 D), INTRAVENOUS
     Route: 042
     Dates: start: 20040730, end: 20040730
  5. VECURONIUM BROMIDE [Concomitant]
  6. FENTANEST (FENTANYL CITRATE) [Concomitant]
  7. CARBOCAIN (MEPIVACAINE HYDROCHLORIDE) [Concomitant]
  8. EPHEDRIN (EPHEDRIN) [Concomitant]
  9. PERIDIPINE (NICARDIPINE HYDROCHLORIDE) [Concomitant]
  10. ATROPINE [Concomitant]
  11. VAGOSTIGMIN #1  (NEOSTIGMINE METILSULFATE) [Concomitant]
  12. ROPIVACIANE HYDROCHLORIDE (ROPIVACIANE HYDROCHLORIDE) [Concomitant]
  13. MORPHIEN HYDROCHLROIDE (MORPHINE HYDROCHLORIDE) [Concomitant]
  14. CATABON (DOPAMINE HYDROCHLORIDE) [Concomitant]
  15. SEVOFLURANE [Concomitant]

REACTIONS (2)
  - HAEMATURIA [None]
  - RHABDOMYOLYSIS [None]
